FAERS Safety Report 5524599-7 (Version None)
Quarter: 2007Q4

REPORT INFORMATION
  Report Type: 
  Country: None (occurrence: None)
  Receive Date: 20071123
  Receipt Date: 20071119
  Transmission Date: 20080405
  Serious: Yes (Death)
  Sender: FDA-Public Use
  Company Number: JP-JNJFOC-20071108139

PATIENT
  Sex: Male

DRUGS (9)
  1. DORIBAX [Suspect]
     Route: 041
  2. DORIBAX [Suspect]
     Indication: PNEUMONIA
     Route: 041
  3. TAIPERACILIN [Concomitant]
     Indication: PNEUMONIA
     Route: 065
  4. NEOPHYLLIN [Concomitant]
     Indication: PNEUMONIA
     Route: 050
  5. BISOLVON [Concomitant]
     Indication: PNEUMONIA
     Route: 065
  6. SAXIZON [Concomitant]
     Indication: PNEUMONIA
     Route: 065
  7. PHENYTOIN SODIUM CAP [Concomitant]
     Route: 065
  8. PHENOBARBITAL TAB [Concomitant]
     Route: 030
  9. HOKUNALIN [Concomitant]
     Indication: PNEUMONIA
     Route: 062

REACTIONS (4)
  - ALTERED STATE OF CONSCIOUSNESS [None]
  - DRUG INEFFECTIVE [None]
  - GRAND MAL CONVULSION [None]
  - PYREXIA [None]
